FAERS Safety Report 17538237 (Version 1)
Quarter: 2020Q1

REPORT INFORMATION
  Report Type: Spontaneous
  Country: US (occurrence: US)
  Receive Date: 20200305
  Receipt Date: 20200305
  Transmission Date: 20200409
  Serious: No
  Sender: FDA-Public Use
  Company Number: None

PATIENT
  Age: 49 Year
  Sex: Male
  Weight: 87.1 kg

DRUGS (2)
  1. TOPOTECAN [Suspect]
     Active Substance: TOPOTECAN HYDROCHLORIDE
     Dates: end: 20200209
  2. CARBOPLATIN. [Suspect]
     Active Substance: CARBOPLATIN
     Dates: end: 20200209

REACTIONS (3)
  - Arthritis bacterial [None]
  - Gout [None]
  - Haematoma [None]

NARRATIVE: CASE EVENT DATE: 20200226
